FAERS Safety Report 8610961-2 (Version None)
Quarter: 2012Q3

REPORT INFORMATION
  Report Type: 
  Country: None (occurrence: None)
  Receive Date: 20120822
  Receipt Date: 20120817
  Transmission Date: 20120928
  Serious: No
  Sender: FDA-Public Use
  Company Number: US-PFIZER INC-2012202862

PATIENT
  Sex: Male

DRUGS (4)
  1. TYLENOL [Concomitant]
     Dosage: UNK
  2. PROTONIX [Suspect]
     Indication: GASTROOESOPHAGEAL REFLUX DISEASE
     Dosage: 40 MG, 1X/DAY
     Route: 048
  3. DILTIAZEM [Concomitant]
     Dosage: UNK
  4. KLOR-CON [Concomitant]
     Dosage: UNK

REACTIONS (1)
  - MEDICATION RESIDUE [None]
